FAERS Safety Report 24803439 (Version 1)
Quarter: 2025Q1

REPORT INFORMATION
  Report Type: Report from Study
  Country: US (occurrence: US)
  Receive Date: 20250103
  Receipt Date: 20250103
  Transmission Date: 20250409
  Serious: Yes (Other)
  Sender: EMD SERONO INC
  Company Number: US-Merck Healthcare KGaA-2024035260

PATIENT
  Age: 72 Year
  Sex: Female

DRUGS (2)
  1. REBIF [Suspect]
     Active Substance: INTERFERON BETA-1A
     Indication: Multiple sclerosis
     Dates: start: 2013
  2. GABAPENTIN [Concomitant]
     Active Substance: GABAPENTIN
     Indication: Arthralgia

REACTIONS (6)
  - Musculoskeletal discomfort [Unknown]
  - Pain in extremity [Unknown]
  - Feeling of despair [Not Recovered/Not Resolved]
  - Crying [Unknown]
  - Decreased interest [Unknown]
  - Depressed mood [Not Recovered/Not Resolved]
